FAERS Safety Report 19454017 (Version 5)
Quarter: 2023Q1

REPORT INFORMATION
  Report Type: Spontaneous
  Country: PL (occurrence: PL)
  Receive Date: 20210623
  Receipt Date: 20230109
  Transmission Date: 20230418
  Serious: Yes (Life-Threatening, Other)
  Sender: FDA-Public Use
  Company Number: PL-NOVARTISPH-NVSC2021PL140198

PATIENT
  Age: 70 Year
  Sex: Male

DRUGS (3)
  1. IMATINIB [Suspect]
     Active Substance: IMATINIB
     Indication: Gastrointestinal stromal tumour
     Dosage: 400 MILLIGRAM, QD
     Route: 065
     Dates: start: 201801
  2. IMATINIB [Suspect]
     Active Substance: IMATINIB
     Indication: Metastases to liver
     Dosage: 800 MG, QD
     Route: 065
     Dates: start: 201801
  3. IMATINIB [Suspect]
     Active Substance: IMATINIB
     Dosage: 600 MG, QD
     Route: 065
     Dates: start: 201801, end: 201810

REACTIONS (5)
  - Drug resistance [Unknown]
  - Skin toxicity [Unknown]
  - Fluid retention [Unknown]
  - Gastrointestinal stromal tumour [Unknown]
  - Malignant neoplasm progression [Unknown]
